FAERS Safety Report 25014945 (Version 3)
Quarter: 2025Q1

REPORT INFORMATION
  Report Type: Spontaneous
  Country: DO (occurrence: DO)
  Receive Date: 20250226
  Receipt Date: 20250331
  Transmission Date: 20250409
  Serious: No
  Sender: PFIZER
  Company Number: DO-PFIZER INC-PV202500021715

PATIENT
  Age: 12 Year
  Sex: Female

DRUGS (1)
  1. GENOTROPIN [Suspect]
     Active Substance: SOMATROPIN
     Dosage: 2.4 MG, DAILY

REACTIONS (3)
  - Device issue [Unknown]
  - Injection site pain [Unknown]
  - Crying [Unknown]
